FAERS Safety Report 5677534-5 (Version None)
Quarter: 2008Q1

REPORT INFORMATION
  Report Type: 
  Country: None (occurrence: None)
  Receive Date: 20080324
  Receipt Date: 20080312
  Transmission Date: 20080703
  Serious: Yes (Other)
  Sender: FDA-Public Use
  Company Number: US-ELI_LILLY_AND_COMPANY-US200801006239

PATIENT
  Sex: Female

DRUGS (6)
  1. FORTEO [Suspect]
     Indication: OSTEOPOROSIS
     Dosage: UNK, UNK
     Dates: start: 20060501
  2. FORTEO [Suspect]
  3. COUMADIN [Concomitant]
  4. OCUVITE [Concomitant]
  5. VITAMIN E /001105/ [Concomitant]
  6. FUROSEMIDE [Concomitant]

REACTIONS (1)
  - MULTIPLE MYELOMA [None]
